FAERS Safety Report 10421287 (Version 9)
Quarter: 2022Q1

REPORT INFORMATION
  Report Type: Spontaneous
  Country: GB (occurrence: GB)
  Receive Date: 20140831
  Receipt Date: 20220228
  Transmission Date: 20220423
  Serious: Yes (Life-Threatening, Hospitalization, Disabling, Congenital Anomaly, Other)
  Sender: FDA-Public Use
  Company Number: GB-AUROBINDO-AUR-APL-2013-07872

PATIENT
  Age: 1 Hour
  Sex: Female
  Weight: 2.2 kg

DRUGS (42)
  1. ZIDOVUDINE [Suspect]
     Active Substance: ZIDOVUDINE
     Indication: HIV infection
     Dosage: UNK UNK,UNK,
     Route: 064
     Dates: start: 20070605, end: 20081023
  2. ZIDOVUDINE [Suspect]
     Active Substance: ZIDOVUDINE
     Indication: Antiviral prophylaxis
     Dosage: UNK
     Route: 064
  3. APTIVUS [Suspect]
     Active Substance: TIPRANAVIR
     Indication: HIV infection
     Dosage: 500 MILLIGRAM, TWO TIMES A DAY
     Route: 064
     Dates: start: 20060905, end: 20081023
  4. APTIVUS [Suspect]
     Active Substance: TIPRANAVIR
     Indication: HIV infection
     Dosage: UNK
     Route: 064
     Dates: start: 20060905, end: 20081023
  5. APTIVUS [Suspect]
     Active Substance: TIPRANAVIR
     Dosage: UNK
     Route: 064
     Dates: start: 20070605, end: 200810
  6. ETRAVIRINE [Suspect]
     Active Substance: ETRAVIRINE
     Indication: Product used for unknown indication
     Dosage: 1000 MILLIGRAM, ONCE A DAY
     Route: 064
     Dates: start: 20081023
  7. INTELENCE [Suspect]
     Active Substance: ETRAVIRINE
     Indication: HIV infection
     Dosage: 1000 MILLIGRAM, ONCE A DAY
     Route: 064
     Dates: start: 20081023
  8. INTELENCE [Suspect]
     Active Substance: ETRAVIRINE
     Indication: Antiretroviral therapy
     Dosage: 500 MILLIGRAM, ONCE A DAY
     Route: 064
     Dates: start: 20081023
  9. INTELENCE [Suspect]
     Active Substance: ETRAVIRINE
     Dosage: 400 MG,ONCE A DAY,
     Route: 064
  10. INTELENCE [Suspect]
     Active Substance: ETRAVIRINE
     Dosage: 500 MG,TWO TIMES A DAY,
     Route: 064
  11. INTELENCE [Suspect]
     Active Substance: ETRAVIRINE
     Dosage: 200 MG,TWO TIMES A DAY,
     Route: 064
     Dates: end: 20081023
  12. ISENTRESS [Suspect]
     Active Substance: RALTEGRAVIR POTASSIUM
     Indication: HIV infection
     Dosage: 400 MG, QD
     Route: 064
     Dates: start: 20081023, end: 20090221
  13. ISENTRESS [Suspect]
     Active Substance: RALTEGRAVIR POTASSIUM
     Indication: HIV infection
     Dosage: 800 MG,ONCE A DAY,
     Route: 064
  14. ISENTRESS [Suspect]
     Active Substance: RALTEGRAVIR POTASSIUM
     Dosage: 200 MG,TWO TIMES A DAY,
     Route: 064
  15. ISENTRESS [Suspect]
     Active Substance: RALTEGRAVIR POTASSIUM
     Dosage: 2 UNK,ONCE A DAY,BID
     Route: 064
  16. ISENTRESS [Suspect]
     Active Substance: RALTEGRAVIR POTASSIUM
     Dosage: UNK, TWO TIMES A DAY
     Route: 064
  17. ISENTRESS [Suspect]
     Active Substance: RALTEGRAVIR POTASSIUM
     Dosage: BID
     Route: 064
  18. NORVIR [Suspect]
     Active Substance: RITONAVIR
     Indication: HIV infection
     Dosage: UNK
     Route: 064
     Dates: start: 20060905
  19. NORVIR [Suspect]
     Active Substance: RITONAVIR
     Indication: HIV infection
     Dosage: 200 MILLIGRAM, ONCE A DAY
     Route: 064
     Dates: start: 20060905, end: 20081022
  20. NORVIR [Suspect]
     Active Substance: RITONAVIR
     Dosage: 100 MG,TWO TIMES A DAY,
     Route: 064
     Dates: start: 20060906, end: 20081023
  21. NORVIR [Suspect]
     Active Substance: RITONAVIR
     Dosage: 200 MG,ONCE A DAY,
     Route: 064
     Dates: start: 20081023
  22. NORVIR [Suspect]
     Active Substance: RITONAVIR
     Dosage: 100 MILLIGRAM
     Route: 064
     Dates: start: 20081023
  23. NORVIR [Suspect]
     Active Substance: RITONAVIR
     Dosage: 400 MG,ONCE A DAY,
     Route: 064
  24. PREZISTA [Suspect]
     Active Substance: DARUNAVIR ETHANOLATE
     Indication: HIV infection
     Dosage: 600 MILLIGRAM, TWO TIMES A DAY (1200 MG. CUMULATIVE DOSE TO FIRST REACTION 157200.0 )
     Route: 064
     Dates: start: 20081023
  25. PREZISTA [Suspect]
     Active Substance: DARUNAVIR ETHANOLATE
     Indication: HIV infection
  26. RALTEGRAVIR [Suspect]
     Active Substance: RALTEGRAVIR
     Indication: Product used for unknown indication
     Dosage: 400 MILLIGRAM, ONCE A DAY
     Route: 064
     Dates: start: 20081023, end: 20090221
  27. TRUVADA [Suspect]
     Active Substance: EMTRICITABINE\TENOFOVIR DISOPROXIL FUMARATE
     Indication: HIV infection
     Dosage: UNK
     Route: 064
     Dates: start: 20070605, end: 20081023
  28. TRUVADA [Suspect]
     Active Substance: EMTRICITABINE\TENOFOVIR DISOPROXIL FUMARATE
     Indication: HIV infection
     Dosage: 32 DOSAGE FORM
     Route: 064
  29. TIPRANAVIR [Suspect]
     Active Substance: TIPRANAVIR
     Indication: Exposure during pregnancy
     Dosage: UNK
     Route: 064
     Dates: start: 20070605, end: 200810
  30. INSULIN NOS [Concomitant]
     Active Substance: INSULIN NOS
     Indication: Gestational diabetes
     Dosage: UNK
     Route: 064
  31. NOVORAPID [Concomitant]
     Active Substance: INSULIN ASPART
     Indication: Gestational diabetes
     Dosage: UNK
     Route: 064
  32. NOVORAPID [Concomitant]
     Active Substance: INSULIN ASPART
     Dosage: 200 MILLIGRAM, ONCE A DAY
     Route: 064
  33. NOVORAPID [Concomitant]
     Active Substance: INSULIN ASPART
     Dosage: 200 MILLIGRAM, TWO TIMES A DAY
     Route: 064
  34. PREDNISOLONE [Concomitant]
     Active Substance: PREDNISOLONE
     Indication: Product used for unknown indication
     Dosage: 25 MILLIGRAM, ONCE A DAY
     Route: 064
  35. OXYGEN [Concomitant]
     Active Substance: OXYGEN
     Indication: Product used for unknown indication
     Dosage: UNK
     Route: 064
  36. ENFUVIRTIDE [Concomitant]
     Active Substance: ENFUVIRTIDE
     Indication: Product used for unknown indication
     Dosage: UNK
     Route: 064
  37. ENFUVIRTIDE [Concomitant]
     Active Substance: ENFUVIRTIDE
     Indication: Product used for unknown indication
  38. NITROUS OXIDE [Concomitant]
     Active Substance: NITROUS OXIDE
     Indication: Product used for unknown indication
     Dosage: UNK
     Route: 064
  39. NITROUS OXIDE [Concomitant]
     Active Substance: NITROUS OXIDE
     Indication: Product used for unknown indication
  40. ZIDOVUDINE [Concomitant]
     Active Substance: ZIDOVUDINE
     Indication: Product used for unknown indication
     Dosage: UNK
     Route: 064
  41. INTELENCE [Suspect]
     Active Substance: ETRAVIRINE
     Indication: HIV infection
     Dosage: 500 MILLIGRAM
     Route: 065
     Dates: start: 20081023
  42. INTELENCE [Suspect]
     Active Substance: ETRAVIRINE
     Indication: Antiretroviral therapy

REACTIONS (31)
  - Tethered cord syndrome [Recovered/Resolved with Sequelae]
  - Congenital generalised lipodystrophy [Unknown]
  - Genitalia external ambiguous [Recovered/Resolved with Sequelae]
  - Gastrointestinal disorder congenital [Recovered/Resolved]
  - Exomphalos [Recovered/Resolved with Sequelae]
  - Meconium stain [Recovered/Resolved with Sequelae]
  - Meningomyelocele [Recovered/Resolved with Sequelae]
  - Sepsis neonatal [Recovered/Resolved]
  - Blood iron decreased [Recovered/Resolved]
  - Umbilical cord abnormality [Recovered/Resolved with Sequelae]
  - Musculoskeletal discomfort [Recovered/Resolved with Sequelae]
  - Cloacal exstrophy [Recovered/Resolved with Sequelae]
  - Bladder agenesis [Recovered/Resolved with Sequelae]
  - Spine malformation [Recovered/Resolved with Sequelae]
  - Gastrointestinal malformation [Unknown]
  - Erythema [Recovered/Resolved]
  - Caudal regression syndrome [Recovered/Resolved with Sequelae]
  - Congenital anomaly [Unknown]
  - Anal atresia [Recovered/Resolved with Sequelae]
  - Congenital genital malformation [Recovered/Resolved with Sequelae]
  - Premature baby [Recovered/Resolved]
  - Foetal exposure during pregnancy [Recovered/Resolved]
  - Spina bifida [Unknown]
  - Neural tube defect [Unknown]
  - Lipodystrophy acquired [Not Recovered/Not Resolved]
  - Musculoskeletal deformity [Recovered/Resolved with Sequelae]
  - Congenital ectopic bladder [Unknown]
  - Congenital musculoskeletal anomaly [Recovered/Resolved]
  - Anencephaly [Unknown]
  - Fibrosis [Unknown]
  - Aspartate aminotransferase increased [Unknown]

NARRATIVE: CASE EVENT DATE: 20080614
